FAERS Safety Report 17386962 (Version 1)
Quarter: 2020Q1

REPORT INFORMATION
  Report Type: Spontaneous
  Country: CA (occurrence: CA)
  Receive Date: 20200206
  Receipt Date: 20200206
  Transmission Date: 20200409
  Serious: Yes (Life-Threatening, Hospitalization, Other)
  Sender: FDA-Public Use
  Company Number: CA-BAUSCH-BL-2020-003362

PATIENT
  Age: 52 Year
  Sex: Male

DRUGS (27)
  1. LORAZEPAM. [Suspect]
     Active Substance: LORAZEPAM
     Route: 048
  2. ESCITALOPRAM OXALATE. [Suspect]
     Active Substance: ESCITALOPRAM OXALATE
     Indication: DEPRESSION
     Route: 065
  3. MORPHINE [Suspect]
     Active Substance: MORPHINE
     Route: 048
  4. MORPHINE SULFATE. [Suspect]
     Active Substance: MORPHINE SULFATE
     Indication: DEPRESSION
     Route: 065
  5. ZOPICLONE [Suspect]
     Active Substance: ZOPICLONE
     Route: 048
  6. ALTACE [Suspect]
     Active Substance: RAMIPRIL
     Indication: PRODUCT USED FOR UNKNOWN INDICATION
     Route: 065
  7. CITALOPRAM [Suspect]
     Active Substance: CITALOPRAM HYDROBROMIDE
     Indication: DEPRESSION
     Route: 048
  8. ESCITALOPRAM OXALATE. [Suspect]
     Active Substance: ESCITALOPRAM OXALATE
     Route: 048
  9. MORPHINE [Suspect]
     Active Substance: MORPHINE
     Indication: DEPRESSION
     Route: 065
  10. OXYCODONE [Suspect]
     Active Substance: OXYCODONE
     Indication: SPINAL STENOSIS
     Route: 065
  11. ZOPICLONE [Suspect]
     Active Substance: ZOPICLONE
     Indication: INSOMNIA
     Route: 065
  12. DIAZEPAM. [Suspect]
     Active Substance: DIAZEPAM
     Indication: SPINAL STENOSIS
     Route: 048
  13. ACETAMINOPHEN/OXYCODONE HYDROCHLORIDE [Suspect]
     Active Substance: ACETAMINOPHEN\OXYCODONE HYDROCHLORIDE
     Indication: PRODUCT USED FOR UNKNOWN INDICATION
     Route: 048
  14. OXYCODONE [Suspect]
     Active Substance: OXYCODONE
     Route: 048
  15. MORPHINE [Suspect]
     Active Substance: MORPHINE
     Route: 048
  16. ESCITALOPRAM OXALATE. [Suspect]
     Active Substance: ESCITALOPRAM OXALATE
     Route: 065
  17. MORPHINE [Suspect]
     Active Substance: MORPHINE
     Route: 065
  18. DIAZEPAM. [Suspect]
     Active Substance: DIAZEPAM
     Indication: SPINAL STENOSIS
     Route: 065
  19. LORAZEPAM. [Suspect]
     Active Substance: LORAZEPAM
     Indication: INSOMNIA
     Route: 048
  20. MORPHINE [Suspect]
     Active Substance: MORPHINE
     Indication: SPINAL STENOSIS
     Route: 065
  21. MORPHINE [Suspect]
     Active Substance: MORPHINE
     Route: 065
  22. OXYCODONE [Suspect]
     Active Substance: OXYCODONE
     Route: 065
  23. ZOPICLONE [Suspect]
     Active Substance: ZOPICLONE
     Route: 048
  24. MORPHINE [Suspect]
     Active Substance: MORPHINE
     Route: 065
  25. MORPHINE [Suspect]
     Active Substance: MORPHINE
     Route: 065
  26. OXYCODONE [Suspect]
     Active Substance: OXYCODONE
     Route: 048
  27. MORPHINE SULFATE. [Suspect]
     Active Substance: MORPHINE SULFATE
     Indication: SPINAL STENOSIS
     Route: 065

REACTIONS (22)
  - Oxygen saturation decreased [Unknown]
  - Drug interaction [Unknown]
  - Mechanical ventilation [Unknown]
  - Hyperkalaemia [Unknown]
  - Sinus tachycardia [Unknown]
  - Electrocardiogram abnormal [Unknown]
  - Heart rate decreased [Unknown]
  - Suicide attempt [Unknown]
  - Blood pressure decreased [Unknown]
  - Coma [Unknown]
  - Opiates positive [Unknown]
  - Bradycardia [Unknown]
  - Blood creatine phosphokinase increased [Unknown]
  - Drug screen positive [Unknown]
  - Hypotension [Unknown]
  - Overdose [Unknown]
  - Blood potassium increased [Unknown]
  - Blood creatinine increased [Unknown]
  - Intentional overdose [Unknown]
  - Coma scale abnormal [Unknown]
  - Electrocardiogram QT prolonged [Unknown]
  - Loss of consciousness [Unknown]
